FAERS Safety Report 4332386-0 (Version None)
Quarter: 2004Q2

REPORT INFORMATION
  Report Type: 
  Country: None (occurrence: None)
  Receive Date: 20040401
  Receipt Date: 20040322
  Transmission Date: 20050107
  Serious: Yes (Death)
  Sender: FDA-Public Use
  Company Number: SP-2004-001586

PATIENT
  Age: 70 Year
  Sex: Male

DRUGS (6)
  1. VOTUM 20 [Suspect]
     Indication: HYPERTENSION
     Dosage: 20 MG QD PO
     Route: 048
     Dates: start: 20040227, end: 20040309
  2. PLAVIX [Concomitant]
  3. HCT 25 [Concomitant]
  4. LISINOPRIL [Concomitant]
  5. FELODIPINE [Concomitant]
  6. ALBUTEROL SULFATE [Concomitant]

REACTIONS (3)
  - DRUG INEFFECTIVE [None]
  - DYSPNOEA [None]
  - NASOPHARYNGITIS [None]
